FAERS Safety Report 7872540-4 (Version None)
Quarter: 2011Q4

REPORT INFORMATION
  Report Type: 
  Country: None (occurrence: None)
  Receive Date: 20111030
  Receipt Date: 20110427
  Transmission Date: 20120403
  Serious: No
  Sender: FDA-Public Use
  Company Number: US-AMGEN-USASP2011021909

PATIENT
  Age: 60 Year
  Sex: Female

DRUGS (18)
  1. DARVON [Concomitant]
     Dosage: 65 MG, UNK
  2. PREDNISONE [Concomitant]
     Dosage: 5 MG, UNK
  3. RANITIDINE [Concomitant]
     Dosage: 75 MG, UNK
  4. ARAVA [Concomitant]
     Dosage: 10 MG, UNK
  5. GLIPIZIDE [Concomitant]
     Dosage: 5 MG, UNK
  6. VITAMIN C                          /00008001/ [Concomitant]
     Dosage: 50000 IU, UNK
  7. LODINE [Concomitant]
     Dosage: 400 MG, UNK
  8. ZITHROMAX [Concomitant]
  9. CRESTOR [Concomitant]
     Dosage: 20 MG, UNK
  10. VITAMIN B12                        /00056201/ [Concomitant]
  11. ZETIA [Concomitant]
     Dosage: 10 MG, UNK
  12. ENBREL [Suspect]
     Indication: PRODUCT USED FOR UNKNOWN INDICATION
     Dosage: 50 MG, QWK
  13. FOSAMAX [Concomitant]
     Dosage: 70 MG, UNK
  14. ADVAIR DISKUS 100/50 [Concomitant]
  15. FISH OIL [Concomitant]
  16. CENTRUM SILVER                     /01292501/ [Concomitant]
  17. VICODIN ES [Concomitant]
  18. DIOVAN [Concomitant]
     Dosage: 40 MG, UNK

REACTIONS (1)
  - UPPER RESPIRATORY TRACT INFECTION [None]
